FAERS Safety Report 26183044 (Version 1)
Quarter: 2025Q4

REPORT INFORMATION
  Report Type: Spontaneous
  Country: US (occurrence: US)
  Receive Date: 20251221
  Receipt Date: 20251221
  Transmission Date: 20260117
  Serious: No
  Sender: ACCORD
  Company Number: US-Accord-501519

PATIENT
  Age: 71 Year
  Sex: Male
  Weight: 64.1 kg

DRUGS (1)
  1. UDENYCA [Suspect]
     Active Substance: PEGFILGRASTIM-CBQV
     Indication: Product used for unknown indication
     Dates: start: 20250702

REACTIONS (1)
  - Device malfunction [Unknown]

NARRATIVE: CASE EVENT DATE: 20250702
